FAERS Safety Report 5702958-7 (Version None)
Quarter: 2008Q2

REPORT INFORMATION
  Report Type: 
  Country: None (occurrence: None)
  Receive Date: 20080408
  Receipt Date: 20080401
  Transmission Date: 20081010
  Serious: Yes (Death, Hospitalization, Other)
  Sender: FDA-Public Use
  Company Number: THQ2008A00580

PATIENT
  Age: 66 Year
  Sex: Male

DRUGS (6)
  1. PROCRIN TRIMESTRAL       (LEUPROLIDE ACETATE) [Suspect]
     Indication: PROSTATIC ADENOMA
     Dosage: 22.5 MG (22.5 MG, 1 IN 3 M), INTRAMUSCULAR
     Route: 030
     Dates: start: 20061201, end: 20070828
  2. SIMVASTATIN [Concomitant]
  3. SERETIDE [Concomitant]
  4. DILTIAZEM [Concomitant]
  5. LORAZEPAM [Concomitant]
  6. ACETYLSALICYLIC ACID SRT [Concomitant]

REACTIONS (4)
  - MYALGIA [None]
  - MYOPATHY [None]
  - NEOPLASM PROGRESSION [None]
  - RESPIRATORY FAILURE [None]
